FAERS Safety Report 8600052 (Version 4)
Quarter: 2013Q4

REPORT INFORMATION
  Report Type: Spontaneous
  Country: AU (occurrence: AU)
  Receive Date: 20120605
  Receipt Date: 20131126
  Transmission Date: 20140711
  Serious: Yes (Death, Hospitalization, Other)
  Sender: FDA-Public Use
  Company Number: AU-B.I. PHARMACEUTICALS,INC./RIDGEFIELD-2012-AU-00283AU

PATIENT
  Sex: Male

DRUGS (11)
  1. PRADAXA [Suspect]
     Indication: ATRIAL FIBRILLATION
     Dosage: 220 MG
     Dates: start: 20110706, end: 201112
  2. PRADAXA [Suspect]
     Indication: EMBOLIC STROKE
  3. LIPITOR [Concomitant]
     Dosage: 20 MG
  4. OSTEOVIT [Concomitant]
     Dosage: 40 MG
  5. PANADOL OSTEO [Concomitant]
  6. SERTRA [Concomitant]
     Dosage: 50 MG
  7. TRANSIDERM NITRO [Concomitant]
  8. FRUSEMIDE [Concomitant]
     Dosage: 40 MG
  9. FRUSEMIDE [Concomitant]
     Dosage: 80 MG
  10. INDOPRIL [Concomitant]
     Dosage: 2 MG
     Dates: end: 201112
  11. MINAX [Concomitant]
     Dosage: 12.5 MG
     Dates: end: 201112

REACTIONS (6)
  - Cerebrovascular accident [Fatal]
  - Gastrointestinal haemorrhage [Recovered/Resolved]
  - Haemoglobin decreased [Unknown]
  - Cerebrovascular accident [Unknown]
  - Fall [Unknown]
  - Renal impairment [Unknown]
